FAERS Safety Report 8950328 (Version 1)
Quarter: 2012Q4

REPORT INFORMATION
  Report Type: Spontaneous
  Country: US (occurrence: None)
  Receive Date: 20121130
  Receipt Date: 20121130
  Transmission Date: 20130627
  Serious: No
  Sender: FDA-Public Use
  Company Number: None

PATIENT
  Age: 77 Year
  Sex: Male

DRUGS (10)
  1. XARELTO [Suspect]
     Route: 048
     Dates: start: 201203
  2. ALLEGRA [Concomitant]
  3. COD LIVER OIL [Concomitant]
  4. DIGESTIVE ENZYMES [Concomitant]
  5. MAGNESIUM [Concomitant]
  6. PROBIOTIC FORMULA PRN [Concomitant]
  7. PROPRANOLOL [Concomitant]
  8. VITAMIN C [Concomitant]
  9. VITAMIN D [Concomitant]
  10. ZINC [Concomitant]

REACTIONS (1)
  - Abdominal discomfort [None]
